FAERS Safety Report 8238430-2 (Version None)
Quarter: 2012Q1

REPORT INFORMATION
  Report Type: 
  Country: None (occurrence: None)
  Receive Date: 20120327
  Receipt Date: 20120326
  Transmission Date: 20120608
  Serious: Yes (Disabling)
  Sender: FDA-Public Use
  Company Number: IE-ABBOTT-12P-229-0894539-00

PATIENT
  Sex: Male
  Weight: 112 kg

DRUGS (1)
  1. FENOFIBRATE [Suspect]
     Indication: LIPIDS
     Route: 048
     Dates: start: 20120103, end: 20120108

REACTIONS (3)
  - GROIN PAIN [None]
  - MYALGIA [None]
  - MUSCLE TWITCHING [None]
